FAERS Safety Report 19804766 (Version 1)
Quarter: 2021Q3

REPORT INFORMATION
  Report Type: Spontaneous
  Country: US (occurrence: US)
  Receive Date: 20210908
  Receipt Date: 20210908
  Transmission Date: 20211014
  Serious: Yes (Other)
  Sender: FDA-Public Use
  Company Number: US-FRESENIUS KABI-FK202109556

PATIENT
  Age: 44 Year
  Sex: Male

DRUGS (12)
  1. METHOTREXATE (MANUFACTURER UNKNOWN) [Suspect]
     Active Substance: METHOTREXATE
     Dosage: DOSE HAD TO BE REDUCED 50 PERCENT (CYCLE?3)
     Route: 065
  2. PEGASPARGASE [Suspect]
     Active Substance: PEGASPARGASE
     Dosage: 4 MORE CYCLES OF M?SMILE WITH 25 PERCENT DOSE REDUCTION OF CHEMOTHERAPEUTIC AGENTS
     Route: 065
  3. DEXAMETHASONE INJECTION (MANUFACTURER UNKNOWN) [Suspect]
     Active Substance: DEXAMETHASONE
     Dosage: 4 MORE CYCLES OF M?SMILE WITH 25 PERCENT DOSE REDUCTION OF CHEMOTHERAPEUTIC AGENTS
     Route: 065
  4. ETOPOSIDE (MANUFACTURER UNKNOWN) [Suspect]
     Active Substance: ETOPOSIDE
     Indication: ANGIOCENTRIC LYMPHOMA
     Dosage: CYCLE?1 AND 2
     Route: 065
  5. IFOSFAMIDE (MANUFACTURER UNKNOWN) [Suspect]
     Active Substance: IFOSFAMIDE
     Indication: ANGIOCENTRIC LYMPHOMA
     Dosage: CYCLE?1 AND 2
     Route: 065
  6. DEXAMETHASONE INJECTION (MANUFACTURER UNKNOWN) [Suspect]
     Active Substance: DEXAMETHASONE
     Indication: ANGIOCENTRIC LYMPHOMA
     Dosage: 40 MG/D GIVEN ON DAYS 2 TO 4 (CYCLE 1 AND 2)
     Route: 065
  7. METHOTREXATE (MANUFACTURER UNKNOWN) [Suspect]
     Active Substance: METHOTREXATE
     Dosage: INTRAVITREAL METHOTREXATE OF THE LEFT EYE
     Route: 065
  8. IFOSFAMIDE (MANUFACTURER UNKNOWN) [Suspect]
     Active Substance: IFOSFAMIDE
     Dosage: 4 MORE CYCLES OF M?SMILE WITH 25 PERCENT DOSE REDUCTION OF CHEMOTHERAPEUTIC AGENTS
     Route: 065
  9. METHOTREXATE (MANUFACTURER UNKNOWN) [Suspect]
     Active Substance: METHOTREXATE
     Indication: ANGIOCENTRIC LYMPHOMA
     Dosage: DOSE: 2G/M2 ON DAY 1 (CYCLE?1 AND 2)
     Route: 065
  10. METHOTREXATE (MANUFACTURER UNKNOWN) [Suspect]
     Active Substance: METHOTREXATE
     Dosage: 4 MORE CYCLES OF M?SMILE WITH 25 PERCENT DOSE REDUCTION OF CHEMOTHERAPEUTIC AGENTS
     Route: 065
  11. ETOPOSIDE (MANUFACTURER UNKNOWN) [Suspect]
     Active Substance: ETOPOSIDE
     Dosage: 4 MORE CYCLES OF M?SMILE WITH 25 PERCENT DOSE REDUCTION OF CHEMOTHERAPEUTIC AGENTS
     Route: 065
  12. PEGASPARGASE [Suspect]
     Active Substance: PEGASPARGASE
     Indication: ANGIOCENTRIC LYMPHOMA
     Dosage: 2000 U/M2 GIVEN ON DAY 8 OF A 28?DAY CYCLE (CYCLE?1 AND 2)
     Route: 065

REACTIONS (2)
  - Cytopenia [Unknown]
  - Nephropathy toxic [Unknown]
